FAERS Safety Report 8207661-X (Version None)
Quarter: 2012Q1

REPORT INFORMATION
  Report Type: 
  Country: None (occurrence: None)
  Receive Date: 20120314
  Receipt Date: 20120305
  Transmission Date: 20120608
  Serious: Yes (Other)
  Sender: FDA-Public Use
  Company Number: GB-JNJFOC-20120304379

PATIENT
  Sex: Male
  Weight: 83 kg

DRUGS (1)
  1. FENTANYL [Suspect]
     Indication: PRODUCT USED FOR UNKNOWN INDICATION
     Route: 048

REACTIONS (3)
  - EUPHORIC MOOD [None]
  - DRUG ADMINISTERED AT INAPPROPRIATE SITE [None]
  - DRUG ABUSE [None]
